FAERS Safety Report 25690906 (Version 1)
Quarter: 2025Q3

REPORT INFORMATION
  Report Type: Spontaneous
  Country: US (occurrence: US)
  Receive Date: 20250818
  Receipt Date: 20250818
  Transmission Date: 20251020
  Serious: No
  Sender: CHATTEM
  Company Number: US-OPELLA-2025OHG024817

PATIENT

DRUGS (1)
  1. XYZAL ALLERGY 24HR [Suspect]
     Active Substance: LEVOCETIRIZINE DIHYDROCHLORIDE
     Indication: Seasonal allergy
     Route: 065

REACTIONS (5)
  - Thirst [Unknown]
  - Somnolence [Unknown]
  - Product formulation issue [Unknown]
  - Wrong technique in product usage process [Unknown]
  - Intentional underdose [Unknown]
